FAERS Safety Report 24449920 (Version 1)
Quarter: 2024Q4

REPORT INFORMATION
  Report Type: Spontaneous
  Country: US (occurrence: None)
  Receive Date: 20241016
  Receipt Date: 20241016
  Transmission Date: 20250114
  Serious: Yes (unspecified)
  Sender: Public
  Company Number: None

PATIENT
  Age: 78 Year
  Sex: Male
  Weight: 84 kg

DRUGS (2)
  1. PROTHROMBIN COMPLEX CONCENTRATE [Suspect]
     Active Substance: COAGULATION FACTOR IX HUMAN\COAGULATION FACTOR VII HUMAN\COAGULATION FACTOR X HUMAN\PROTEIN C\PROTEI
     Indication: Anticoagulation drug level abnormal
     Dosage: OTHER FREQUENCY : ONCE;?
     Route: 042
     Dates: start: 20230915, end: 20230915
  2. CEFTRIAXONE [Suspect]
     Active Substance: CEFTRIAXONE
     Dosage: FREQUENCY : AT BEDTIME;?
     Route: 042
     Dates: start: 20230915, end: 20230915

REACTIONS (2)
  - Pruritus [None]
  - Product lot number issue [None]

NARRATIVE: CASE EVENT DATE: 20230916
